FAERS Safety Report 21331726 (Version 4)
Quarter: 2022Q4

REPORT INFORMATION
  Report Type: Other
  Country: RS (occurrence: None)
  Receive Date: 20220914
  Receipt Date: 20221202
  Transmission Date: 20230113
  Serious: Yes (Death)
  Sender: FDA-Public Use
  Company Number: RS-ROCHE-3175760

PATIENT
  Age: 59 Year
  Sex: Female
  Weight: 53 kg

DRUGS (5)
  1. OCRELIZUMAB [Suspect]
     Active Substance: OCRELIZUMAB
     Indication: Relapsing-remitting multiple sclerosis
     Dosage: ON 14/AN/2022, SHE RECEIVED THE MOST RECENT DOSE OF OCRELIZUMAB (600 MG) PRIOR TO THE STUDY DRUG.
     Route: 042
     Dates: start: 20210114
  2. OCRELIZUMAB [Suspect]
     Active Substance: OCRELIZUMAB
     Route: 042
     Dates: start: 20210128, end: 20210128
  3. OCRELIZUMAB [Suspect]
     Active Substance: OCRELIZUMAB
     Route: 042
     Dates: start: 20210706, end: 20210706
  4. OCRELIZUMAB [Suspect]
     Active Substance: OCRELIZUMAB
     Route: 042
     Dates: start: 20220114, end: 20220114
  5. BISOPROLOL [Concomitant]
     Active Substance: BISOPROLOL
     Route: 048

REACTIONS (1)
  - COVID-19 [Fatal]

NARRATIVE: CASE EVENT DATE: 20220426
